FAERS Safety Report 21707966 (Version 2)
Quarter: 2022Q4

REPORT INFORMATION
  Report Type: Report from Study
  Country: FR (occurrence: FR)
  Receive Date: 20221209
  Receipt Date: 20221226
  Transmission Date: 20230112
  Serious: Yes (Hospitalization)
  Sender: FDA-Public Use
  Company Number: FR-ROCHE-2998303

PATIENT
  Age: 67 Year
  Sex: Female

DRUGS (7)
  1. CAPECITABINE [Suspect]
     Active Substance: CAPECITABINE
     Indication: Colorectal cancer metastatic
     Dosage: 1600 MILLIGRAM
     Route: 065
     Dates: start: 20201207, end: 20211216
  2. BEVACIZUMAB [Suspect]
     Active Substance: BEVACIZUMAB
     Indication: Colorectal cancer metastatic
     Dosage: 387MG(SOLUTION FOR INFUSION,EVERY 1CYCLE)
     Route: 042
     Dates: start: 20210208, end: 20211227
  3. OXALIPLATIN [Suspect]
     Active Substance: OXALIPLATIN
     Indication: Colorectal cancer metastatic
     Dosage: 137 MILLIGRAM EVERY 1 CYCLE(S)
     Route: 042
     Dates: start: 20201207, end: 20210322
  4. CAPECITABINE [Suspect]
     Active Substance: CAPECITABINE
     Indication: Colorectal cancer metastatic
     Dosage: 1600 MILLIGRAM EVERY 1 CYCLE(S)
     Route: 042
     Dates: start: 20201207, end: 20211216
  5. DEVICE\YTTRIUM Y-90 [Suspect]
     Active Substance: DEVICE\YTTRIUM Y-90
     Indication: Colorectal cancer metastatic
     Dosage: 2.23 GIGABECQUEREL EVERY 1 CYCLE(S)
     Route: 042
     Dates: start: 20210121, end: 20210121
  6. INNOHEP [Suspect]
     Active Substance: TINZAPARIN SODIUM
     Indication: Hepatic vein thrombosis
     Dosage: UNK
     Route: 065
     Dates: start: 202108
  7. ATEZOLIZUMAB [Suspect]
     Active Substance: ATEZOLIZUMAB
     Indication: Colorectal cancer metastatic
     Dosage: 1200 MILLIGRAM EVERY 1CYCLE(S)
     Route: 042
     Dates: start: 20201207, end: 20201227

REACTIONS (1)
  - Cerebrovascular accident [Recovered/Resolved]

NARRATIVE: CASE EVENT DATE: 20220103
